FAERS Safety Report 20831537 (Version 2)
Quarter: 2022Q3

REPORT INFORMATION
  Report Type: Report from Study
  Country: US (occurrence: US)
  Receive Date: 20220516
  Receipt Date: 20220708
  Transmission Date: 20221027
  Serious: No
  Sender: FDA-Public Use
  Company Number: US-CELGENE-USA-20220304119

PATIENT
  Age: 50 Year
  Sex: Female

DRUGS (2)
  1. ZEPOSIA [Suspect]
     Active Substance: OZANIMOD HYDROCHLORIDE
     Indication: Multiple sclerosis
     Dosage: 0.92 MILLIGRAM
     Route: 048
     Dates: start: 20210407
  2. ZEPOSIA [Suspect]
     Active Substance: OZANIMOD HYDROCHLORIDE
     Route: 048
     Dates: start: 20220425

REACTIONS (8)
  - Dizziness [Not Recovered/Not Resolved]
  - Malaise [Unknown]
  - Amnesia [Unknown]
  - Confusional state [Unknown]
  - Frustration tolerance decreased [Unknown]
  - Feeling abnormal [Not Recovered/Not Resolved]
  - Adverse event [Unknown]
  - Product dose omission issue [Unknown]

NARRATIVE: CASE EVENT DATE: 20220426
